FAERS Safety Report 15719608 (Version 6)
Quarter: 2019Q2

REPORT INFORMATION
  Report Type: Report from Study
  Country: US (occurrence: US)
  Receive Date: 20181213
  Receipt Date: 20190620
  Transmission Date: 20190711
  Serious: Yes (Hospitalization)
  Sender: FDA-Public Use
  Company Number: US-EISAI MEDICAL RESEARCH-EC-2018-049000

PATIENT
  Age: 79 Year
  Sex: Male
  Weight: 108.6 kg

DRUGS (22)
  1. LENVATINIB [Suspect]
     Active Substance: LENVATINIB
     Route: 048
     Dates: start: 20181112, end: 20181115
  2. ZESTRIL [Concomitant]
     Active Substance: LISINOPRIL
  3. TYLENOL [Concomitant]
     Active Substance: ACETAMINOPHEN
  4. SYNTHROID [Concomitant]
     Active Substance: LEVOTHYROXINE SODIUM
  5. PARICALCITOL. [Concomitant]
     Active Substance: PARICALCITOL
  6. COUMADIN [Concomitant]
     Active Substance: WARFARIN SODIUM
  7. FLORINEF ACETATE [Concomitant]
     Active Substance: FLUDROCORTISONE ACETATE
  8. ANDROGEL [Concomitant]
     Active Substance: TESTOSTERONE
  9. TOPROL XL [Concomitant]
     Active Substance: METOPROLOL SUCCINATE
  10. ASPIRIN. [Concomitant]
     Active Substance: ASPIRIN
  11. CORTEF [Concomitant]
     Active Substance: HYDROCORTISONE
  12. PEMBROLIZUMAB. [Suspect]
     Active Substance: PEMBROLIZUMAB
     Indication: NEOPLASM
     Route: 041
     Dates: start: 20181106, end: 20181127
  13. CHOLECALCIFEROL [Concomitant]
     Active Substance: CHOLECALCIFEROL
  14. FLEXERIL [Concomitant]
     Active Substance: CYCLOBENZAPRINE HYDROCHLORIDE
  15. ZOFRAN [Concomitant]
     Active Substance: ONDANSETRON HYDROCHLORIDE
  16. COLCHICINE. [Concomitant]
     Active Substance: COLCHICINE
  17. DILAUDID [Concomitant]
     Active Substance: HYDROMORPHONE HYDROCHLORIDE
  18. RYTHMOL [Concomitant]
     Active Substance: PROPAFENONE HYDROCHLORIDE
  19. LENVATINIB [Suspect]
     Active Substance: LENVATINIB
     Route: 048
     Dates: start: 20181117, end: 20181202
  20. LENVATINIB [Suspect]
     Active Substance: LENVATINIB
     Indication: NEOPLASM
     Route: 048
     Dates: start: 20181106, end: 20181108
  21. NORVASC [Concomitant]
     Active Substance: AMLODIPINE BESYLATE
  22. ZYLOPRIM [Concomitant]
     Active Substance: ALLOPURINOL

REACTIONS (6)
  - Confusional state [Recovered/Resolved]
  - Pneumonitis [Recovering/Resolving]
  - Autoimmune haemolytic anaemia [Recovered/Resolved]
  - Muscular weakness [Recovering/Resolving]
  - Hyperkalaemia [Recovered/Resolved]
  - Acute kidney injury [Recovering/Resolving]

NARRATIVE: CASE EVENT DATE: 20181130
